FAERS Safety Report 6079989-3 (Version None)
Quarter: 2009Q1

REPORT INFORMATION
  Report Type: 
  Country: None (occurrence: None)
  Receive Date: 20090217
  Receipt Date: 20081203
  Transmission Date: 20090719
  Serious: No
  Sender: FDA-Public Use
  Company Number: A0758951A

PATIENT
  Age: 68 Year
  Sex: Female

DRUGS (8)
  1. COREG CR [Suspect]
     Indication: HYPERTENSION
     Dosage: 10MG PER DAY
     Route: 048
     Dates: start: 20081108
  2. LISINOPRIL [Concomitant]
  3. DEPAKOTE [Concomitant]
  4. LEVOXYL [Concomitant]
  5. INSULIN [Concomitant]
  6. ASPIRIN [Concomitant]
  7. FLOVENT [Concomitant]
  8. XOPENEX [Concomitant]

REACTIONS (1)
  - NAUSEA [None]
